FAERS Safety Report 4462529-X (Version None)
Quarter: 2004Q3

REPORT INFORMATION
  Report Type: 
  Country: None (occurrence: None)
  Receive Date: 20040928
  Receipt Date: 20040910
  Transmission Date: 20050211
  Serious: Yes (Hospitalization)
  Sender: FDA-Public Use
  Company Number: 2004063831

PATIENT
  Age: 57 Year
  Sex: Female

DRUGS (3)
  1. LIPITOR [Suspect]
     Indication: HYPERLIPIDAEMIA
     Dosage: 10 MG (1 IN 1 D), ORAL
     Route: 048
     Dates: start: 20040819, end: 20040820
  2. FEXOFENADINE HYDROCHLORIDE [Suspect]
     Indication: CONJUNCTIVITIS ALLERGIC
     Dosage: 12 MG (1 IN 1 D), ORAL
     Route: 048
     Dates: start: 20040817, end: 20040820
  3. DEXCHLORPHENIRAMINE MALEATE [Suspect]
     Indication: CONJUNCTIVITIS ALLERGIC
     Dosage: 4 MG (1 IN 1 D), ORAL
     Route: 048
     Dates: start: 20040817, end: 20040820

REACTIONS (4)
  - BRADYCARDIA [None]
  - DRUG INTERACTION [None]
  - ELECTROCARDIOGRAM QT PROLONGED [None]
  - HEAD DISCOMFORT [None]
